FAERS Safety Report 10265224 (Version 1)
Quarter: 2014Q2

REPORT INFORMATION
  Report Type: Spontaneous
  Country: US (occurrence: None)
  Receive Date: 20140530
  Receipt Date: 20140530
  Transmission Date: 20141212
  Serious: Yes (Hospitalization)
  Sender: FDA-Public Use
  Company Number: 2013039309

PATIENT
  Sex: Male
  Weight: 86.18 kg

DRUGS (22)
  1. HIZENTRA (IMMUNOGLOBULIN HUMAN NORMAL) [Suspect]
     Indication: IMMUNODEFICIENCY
     Dosage: 1X/WEEK, OVER 1-2 HOURS SUBCUTANEOUS
     Route: 058
  2. ACETAMINOPHEN (PARACETAMOL) [Concomitant]
  3. DIPHENHYDRAMINE [Concomitant]
  4. LIDOCAINE/PRILOCAINE (EMLA /00675501/) [Concomitant]
  5. EPI-PEN (EPINEPHRINE HYDROCHLORIDE) [Concomitant]
  6. SULFASALAZINE [Concomitant]
  7. HYDROCODONE ACETAMINOPHEN (PROCET /01554201/) [Concomitant]
  8. METHOTREXATE [Concomitant]
  9. CITRACAL+D (CALCIUM CITRATE) [Concomitant]
  10. ASTELIN (DIPROPHYLLINE) [Concomitant]
  11. NASACORT (TRIAMCINOLONE ACETONIDE) [Concomitant]
  12. FOLIC ACID [Concomitant]
  13. GABAPENTIN [Concomitant]
  14. SIMVASTATIN [Concomitant]
  15. LEXAPRO (ESCITALOPRAM OXALATE) [Concomitant]
  16. HYDROCODONE/APAP (PROCET /01554201/) [Concomitant]
  17. ALBUTEROL (SALBUTAMOL) [Concomitant]
  18. ASPIRIN EC (ACETYLSALICYLIC ACID) [Concomitant]
  19. MULTIVITAMIN (DAILY MULTIVITAMIN) [Concomitant]
  20. LISINOPRIL [Concomitant]
  21. DICLOFENAC SODIUM [Concomitant]
  22. HYDROXYCHLOROQUINE [Concomitant]

REACTIONS (1)
  - Chest pain [None]
